FAERS Safety Report 13656387 (Version 1)
Quarter: 2017Q2

REPORT INFORMATION
  Report Type: Spontaneous
  Country: JP (occurrence: JP)
  Receive Date: 20170615
  Receipt Date: 20170615
  Transmission Date: 20170830
  Serious: Yes (Other)
  Sender: FDA-Public Use
  Company Number: JP-BAXTER-2008BH000787

PATIENT
  Age: 9 Month
  Sex: Male
  Weight: 9 kg

DRUGS (16)
  1. ADVATE [Suspect]
     Active Substance: ANTIHEMOPHILIC FACTOR, HUMAN RECOMBINANT
     Indication: FACTOR VIII DEFICIENCY
     Dosage: 250DOSAGE FORMSONCE
     Route: 042
     Dates: start: 20071229, end: 20071231
  2. FEIBA [Suspect]
     Active Substance: ANTI-INHIBITOR COAGULANT COMPLEX
     Dosage: 1500 IU, 2X A WEEK
     Route: 042
     Dates: start: 2012, end: 2014
  3. FEIBA [Suspect]
     Active Substance: ANTI-INHIBITOR COAGULANT COMPLEX
     Dosage: 1500 IU, 3X A WEEK
     Route: 042
     Dates: start: 2014, end: 2014
  4. NOVOSEVEN [Concomitant]
     Active Substance: COAGULATION FACTOR VIIA RECOMBINANT HUMAN
     Indication: HAEMOPHILIA A WITH ANTI FACTOR VIII
     Dosage: 270 ?G/KG, 1X A WEEK
     Route: 065
     Dates: start: 2012, end: 2012
  5. ADVATE [Suspect]
     Active Substance: ANTIHEMOPHILIC FACTOR, HUMAN RECOMBINANT
     Dosage: 500DOSAGE FORMS2X A DAY
     Route: 042
     Dates: start: 20080110, end: 20080116
  6. ADVATE [Suspect]
     Active Substance: ANTIHEMOPHILIC FACTOR, HUMAN RECOMBINANT
     Dosage: UNK
  7. ADVATE [Suspect]
     Active Substance: ANTIHEMOPHILIC FACTOR, HUMAN RECOMBINANT
     Dosage: 250DOSAGE FORMSONCE
     Route: 042
     Dates: start: 20080102, end: 20080102
  8. ADVATE [Suspect]
     Active Substance: ANTIHEMOPHILIC FACTOR, HUMAN RECOMBINANT
     Dosage: 250DOSAGE FORMS2X A DAY
     Route: 042
     Dates: start: 20080104, end: 20080104
  9. NOVOSEVEN [Concomitant]
     Active Substance: COAGULATION FACTOR VIIA RECOMBINANT HUMAN
     Dosage: 270 ?G/KG, 2X A WEEK
     Route: 065
     Dates: start: 2012, end: 2012
  10. CONTACT F (COAGULATION FACTOR VIII) [Concomitant]
     Indication: MOUTH HAEMORRHAGE
     Dosage: 250IU (INTERNATIONAL UNIT)2X A DAY
     Route: 042
     Dates: start: 20071226, end: 20071228
  11. ADVATE [Suspect]
     Active Substance: ANTIHEMOPHILIC FACTOR, HUMAN RECOMBINANT
     Dosage: UNK
  12. FEIBA [Suspect]
     Active Substance: ANTI-INHIBITOR COAGULANT COMPLEX
     Indication: HAEMOPHILIA A WITH ANTI FACTOR VIII
     Dosage: UNK
     Route: 042
  13. ADVATE [Suspect]
     Active Substance: ANTIHEMOPHILIC FACTOR, HUMAN RECOMBINANT
     Dosage: 250DOSAGE FORMSONCE
     Route: 042
     Dates: start: 20080107, end: 20080107
  14. ADVATE [Suspect]
     Active Substance: ANTIHEMOPHILIC FACTOR, HUMAN RECOMBINANT
     Dosage: 250DOSAGE FORMSONCE
     Route: 042
     Dates: start: 20080109, end: 20080109
  15. FEIBA [Suspect]
     Active Substance: ANTI-INHIBITOR COAGULANT COMPLEX
     Dosage: 1500 IU, EVERY 2 DY
     Route: 042
     Dates: start: 2014
  16. STEROID (UNSPECIFIED) [Concomitant]
     Active Substance: UNSPECIFIED INGREDIENT
     Indication: DERMATITIS ATOPIC
     Dosage: UNK
     Route: 065

REACTIONS (5)
  - Rash [Recovered/Resolved]
  - Muscle haemorrhage [Unknown]
  - Factor VIII inhibition [Not Recovered/Not Resolved]
  - Haemarthrosis [Unknown]
  - Haemophilic arthropathy [Unknown]

NARRATIVE: CASE EVENT DATE: 20080107
